FAERS Safety Report 6292697-9 (Version None)
Quarter: 2009Q3

REPORT INFORMATION
  Report Type: 
  Country: None (occurrence: None)
  Receive Date: 20090731
  Receipt Date: 20090724
  Transmission Date: 20100115
  Serious: Yes (Hospitalization)
  Sender: FDA-Public Use
  Company Number: A0777778A

PATIENT
  Sex: Male

DRUGS (9)
  1. ADVAIR HFA [Suspect]
     Indication: ASTHMA
     Route: 055
     Dates: start: 20040526
  2. ALBUTEROL [Concomitant]
  3. PREDNISONE [Concomitant]
  4. FLONASE [Concomitant]
  5. ZANTAC [Concomitant]
  6. FLONASE [Concomitant]
  7. ASTELIN [Concomitant]
  8. PATANOL [Concomitant]
  9. SINGULAIR [Concomitant]

REACTIONS (4)
  - ASTHMA [None]
  - PNEUMONIA [None]
  - RESPIRATORY DISORDER [None]
  - RESPIRATORY TRACT INFECTION VIRAL [None]
